FAERS Safety Report 24891023 (Version 3)
Quarter: 2025Q2

REPORT INFORMATION
  Report Type: Spontaneous
  Country: US (occurrence: US)
  Receive Date: 20250127
  Receipt Date: 20250513
  Transmission Date: 20250716
  Serious: No
  Sender: SANOFI AVENTIS
  Company Number: US-SA-2025SA011326

PATIENT
  Age: 61 Year
  Sex: Male

DRUGS (28)
  1. DUPIXENT [Suspect]
     Active Substance: DUPILUMAB
     Indication: Asthma
     Dosage: 300 MG, QOW
     Route: 058
     Dates: start: 202501
  2. HYDROCHLOROTHIAZIDE [Concomitant]
     Active Substance: HYDROCHLOROTHIAZIDE
  3. DOXYCYCLINE [Concomitant]
     Active Substance: DOXYCYCLINE
  4. DICLOFENAC [Concomitant]
     Active Substance: DICLOFENAC
  5. KETOCONAZOLE [Concomitant]
     Active Substance: KETOCONAZOLE
  6. TRELEGY ELLIPTA [Concomitant]
     Active Substance: FLUTICASONE FUROATE\UMECLIDINIUM BROMIDE\VILANTEROL TRIFENATATE
  7. MONTELUKAST [Concomitant]
     Active Substance: MONTELUKAST
  8. SILDENAFIL CITRATE [Concomitant]
     Active Substance: SILDENAFIL CITRATE
  9. IBUPROFEN [Concomitant]
     Active Substance: IBUPROFEN
  10. GABAPENTIN [Concomitant]
     Active Substance: GABAPENTIN
  11. PREDNISOLONE [Concomitant]
     Active Substance: PREDNISOLONE
  12. METHYLPREDNISOLONE [Concomitant]
     Active Substance: METHYLPREDNISOLONE
  13. RANOLAZINE [Concomitant]
     Active Substance: RANOLAZINE
  14. BUPRENORPHINE [Concomitant]
     Active Substance: BUPRENORPHINE
     Dosage: 5MCG/HR
  15. BUPRENORPHINE [Concomitant]
     Active Substance: BUPRENORPHINE
     Dosage: 20MCG/HR
  16. BUPRENORPHINE [Concomitant]
     Active Substance: BUPRENORPHINE
     Dosage: 15MCG/HR
  17. ROCKLATAN [Concomitant]
     Active Substance: LATANOPROST\NETARSUDIL MESYLATE
  18. CHLORTHALIDONE [Concomitant]
     Active Substance: CHLORTHALIDONE
  19. OMEPRAZOLE [Concomitant]
     Active Substance: OMEPRAZOLE
  20. METOPROLOL TARTRATE [Concomitant]
     Active Substance: METOPROLOL TARTRATE
  21. OLMESARTAN MEDOXOMIL [Concomitant]
     Active Substance: OLMESARTAN MEDOXOMIL
  22. OLMESARTAN MEDOXOMIL [Concomitant]
     Active Substance: OLMESARTAN MEDOXOMIL
  23. PREDNISONE [Concomitant]
     Active Substance: PREDNISONE
  24. HYDROXYZINE [Concomitant]
     Active Substance: HYDROXYZINE HYDROCHLORIDE
  25. BENZONATATE [Concomitant]
     Active Substance: BENZONATATE
  26. ALBUTEROL SULFATE [Concomitant]
     Active Substance: ALBUTEROL SULFATE
  27. FERROUS SULFATE [Concomitant]
     Active Substance: FERROUS SULFATE
  28. LASIX [Concomitant]
     Active Substance: FUROSEMIDE

REACTIONS (4)
  - Dyspnoea [Not Recovered/Not Resolved]
  - Fatigue [Not Recovered/Not Resolved]
  - Nasopharyngitis [Not Recovered/Not Resolved]
  - Injection site pain [Not Recovered/Not Resolved]

NARRATIVE: CASE EVENT DATE: 20250101
